FAERS Safety Report 5593242-3 (Version None)
Quarter: 2008Q1

REPORT INFORMATION
  Report Type: 
  Country: None (occurrence: None)
  Receive Date: 20080114
  Receipt Date: 20071229
  Transmission Date: 20080703
  Serious: Yes (Other)
  Sender: FDA-Public Use
  Company Number: ACO_00421_2008

PATIENT
  Sex: Female
  Weight: 74 kg

DRUGS (4)
  1. SIRDALUD (SIRDALUD - TIZANIDINE HYDROCHLORIDE) 2 MG (NOT SPECIFIED) [Suspect]
     Indication: DRUG USE FOR UNKNOWN INDICATION
     Dosage: (2 MG 1X/8 HOURS ORAL), (2 TABS ORAL)
     Route: 048
     Dates: start: 20071001, end: 20071101
  2. SIRDALUD (SIRDALUD - TIZANIDINE HYDROCHLORIDE) 2 MG (NOT SPECIFIED) [Suspect]
     Indication: DRUG USE FOR UNKNOWN INDICATION
     Dosage: (2 MG 1X/8 HOURS ORAL), (2 TABS ORAL)
     Route: 048
     Dates: start: 20071101
  3. BUSCOPAN [Concomitant]
  4. CEPHALEXIN [Concomitant]

REACTIONS (7)
  - ABDOMINAL PAIN [None]
  - BACK PAIN [None]
  - CONVULSION [None]
  - NEPHROLITHIASIS [None]
  - SENSORY DISTURBANCE [None]
  - SOMNOLENCE [None]
  - SYNCOPE [None]
